FAERS Safety Report 4913709-8 (Version None)
Quarter: 2006Q1

REPORT INFORMATION
  Report Type: 
  Country: None (occurrence: None)
  Receive Date: 20060210
  Receipt Date: 20060127
  Transmission Date: 20060701
  Serious: Yes (Hospitalization)
  Sender: FDA-Public Use
  Company Number: 200610004BWH

PATIENT
  Age: 68 Year
  Sex: Male
  Weight: 118.8424 kg

DRUGS (14)
  1. SORAFENIB [Suspect]
     Indication: METASTATIC RENAL CELL CARCINOMA
     Dosage: 400 MG, BID, ORAL
     Route: 048
     Dates: start: 20051130, end: 20051221
  2. SORAFENIB [Suspect]
     Indication: METASTATIC RENAL CELL CARCINOMA
     Dosage: 400 MG, BID, ORAL
     Route: 048
     Dates: start: 20051221, end: 20051228
  3. NEURONTIN [Concomitant]
  4. VITAMIN B6 [Concomitant]
  5. HYDROCHLOROTHIAZIDE [Concomitant]
  6. NORVASC [Concomitant]
  7. ZYLOPRIM [Concomitant]
  8. ASPIRIN [Concomitant]
  9. POTASSIUM CHLORIDE [Concomitant]
  10. COUMADIN [Concomitant]
  11. FOLIC ACID [Concomitant]
  12. ARANESP [Concomitant]
  13. VICODIN [Concomitant]
  14. LYRICA [Concomitant]

REACTIONS (2)
  - SMALL INTESTINAL PERFORATION [None]
  - WHITE BLOOD CELL COUNT INCREASED [None]
